FAERS Safety Report 4665630-0 (Version None)
Quarter: 2005Q2

REPORT INFORMATION
  Report Type: 
  Country: None (occurrence: None)
  Receive Date: 20050517
  Receipt Date: 20050506
  Transmission Date: 20051028
  Serious: Yes (Hospitalization)
  Sender: FDA-Public Use
  Company Number: CEL-2005-00194-ROC

PATIENT
  Age: 29 Year
  Sex: Female
  Weight: 50 kg

DRUGS (5)
  1. DELSYM [Suspect]
     Dosage: 300 ML OVER FOUR DAYS PO
     Route: 048
     Dates: start: 20050130, end: 20050202
  2. ROBITUSSIN [Suspect]
     Dosage: DOSE AND FREQUENCY
     Dates: start: 20050215, end: 20050216
  3. LEXAPRO [Concomitant]
  4. WELLBUTRIN SR [Concomitant]
  5. DEPAKOTE [Concomitant]

REACTIONS (6)
  - ABNORMAL BEHAVIOUR [None]
  - DISORIENTATION [None]
  - DYSARTHRIA [None]
  - HALLUCINATION, AUDITORY [None]
  - HALLUCINATION, VISUAL [None]
  - OVERDOSE [None]
